FAERS Safety Report 9486856 (Version 1)
Quarter: 2013Q3

REPORT INFORMATION
  Report Type: Spontaneous
  Country: US (occurrence: US)
  Receive Date: 20130829
  Receipt Date: 20130829
  Transmission Date: 20140515
  Serious: Yes (Hospitalization)
  Sender: FDA-Public Use
  Company Number: US-B.I. PHARMACEUTICALS,INC./RIDGEFIELD-2013-BI-26470BP

PATIENT
  Age: 86 Year
  Sex: Female

DRUGS (5)
  1. PRADAXA [Suspect]
     Indication: ATRIAL FIBRILLATION
     Dosage: 300 MG
     Route: 048
  2. FUROSEMIDE [Concomitant]
     Dosage: 40 MG
     Route: 048
  3. LUMIGAN EYE DROPS [Concomitant]
  4. DUONEB [Concomitant]
     Route: 055
  5. CARVEDILOL [Concomitant]
     Dosage: 6.25 MG
     Route: 048

REACTIONS (4)
  - Cardiac failure congestive [Recovered/Resolved]
  - Oedema peripheral [Recovered/Resolved]
  - Heart rate decreased [Recovered/Resolved]
  - Oxygen saturation decreased [Recovered/Resolved]
